FAERS Safety Report 5614249-3 (Version None)
Quarter: 2008Q1

REPORT INFORMATION
  Report Type: 
  Country: None (occurrence: None)
  Receive Date: 20080205
  Receipt Date: 20080124
  Transmission Date: 20080703
  Serious: Yes (Hospitalization, Other)
  Sender: FDA-Public Use
  Company Number: US-PFIZER INC-2007102954

PATIENT
  Sex: Male

DRUGS (5)
  1. CHANTIX [Suspect]
     Indication: SMOKING CESSATION THERAPY
     Route: 048
  2. ABILIFY [Suspect]
     Indication: HALLUCINATION
     Dates: start: 20070101, end: 20080101
  3. ABILIFY [Suspect]
     Indication: DELUSION
  4. ABILIFY [Suspect]
     Indication: NIGHTMARE
  5. ALL OTHER THERAPEUTIC PRODUCTS [Concomitant]

REACTIONS (6)
  - ABNORMAL DREAMS [None]
  - CHEST PAIN [None]
  - DYSARTHRIA [None]
  - FEAR [None]
  - JOINT SWELLING [None]
  - POOR PERIPHERAL CIRCULATION [None]
